FAERS Safety Report 6187703-6 (Version None)
Quarter: 2009Q2

REPORT INFORMATION
  Report Type: 
  Country: None (occurrence: None)
  Receive Date: 20090513
  Receipt Date: 20090429
  Transmission Date: 20091009
  Serious: Yes (Other)
  Sender: FDA-Public Use
  Company Number: US-PFIZER INC-2006060394

PATIENT
  Sex: Female
  Weight: 86.17 kg

DRUGS (6)
  1. PROVERA [Suspect]
     Indication: HORMONE REPLACEMENT THERAPY
     Dosage: 5 MG, UNK
     Route: 048
     Dates: start: 19920101, end: 19990101
  2. PREMARIN [Suspect]
     Indication: HORMONE REPLACEMENT THERAPY
     Dosage: 0.625 MG, UNK
     Dates: start: 19920101, end: 19990101
  3. PREMPRO [Suspect]
     Indication: HORMONE REPLACEMENT THERAPY
     Dosage: 0.625/5MG, UNK
     Dates: start: 19980101, end: 20020101
  4. ASPIRIN [Concomitant]
     Indication: COAGULOPATHY
     Dosage: UNK
     Dates: start: 19980101
  5. DYAZIDE [Concomitant]
     Indication: BLOOD PRESSURE
     Dosage: UNK
     Dates: start: 19980101
  6. TRIAMTERENE AND HYDROCHLOROTHIAZID ^HARRIS^ [Concomitant]
     Indication: BLOOD PRESSURE
     Dosage: UNK
     Dates: start: 19900101

REACTIONS (1)
  - BREAST CANCER FEMALE [None]
